FAERS Safety Report 9413599 (Version 1)
Quarter: 2013Q3

REPORT INFORMATION
  Report Type: Spontaneous
  Country: US (occurrence: US)
  Receive Date: 20130722
  Receipt Date: 20130722
  Transmission Date: 20140515
  Serious: No
  Sender: FDA-Public Use
  Company Number: US-009507513-1307USA010318

PATIENT
  Sex: Female
  Weight: 53.97 kg

DRUGS (1)
  1. IMPLANON [Suspect]
     Dosage: UNK
     Route: 059
     Dates: start: 20100402, end: 20130715

REACTIONS (2)
  - Device breakage [Recovered/Resolved]
  - No adverse event [Unknown]
